FAERS Safety Report 4843261-7 (Version None)
Quarter: 2005Q4

REPORT INFORMATION
  Report Type: 
  Country: None (occurrence: None)
  Receive Date: 20051201
  Receipt Date: 20041029
  Transmission Date: 20060501
  Serious: Yes (Hospitalization, Disabling)
  Sender: FDA-Public Use
  Company Number: US-MERCK-0411USA00039

PATIENT
  Age: 54 Year
  Sex: Male

DRUGS (11)
  1. VIOXX [Suspect]
     Indication: FIBROMYALGIA
     Route: 048
     Dates: start: 20001025, end: 20030620
  2. VIOXX [Suspect]
     Route: 048
     Dates: start: 20001025, end: 20030620
  3. LIPITOR [Concomitant]
     Route: 065
  4. TOPROL-XL [Concomitant]
     Route: 065
  5. ZOLOFT [Concomitant]
     Route: 065
  6. LISINOPRIL [Concomitant]
     Route: 065
  7. PLAVIX [Concomitant]
     Route: 065
  8. TRICOR [Concomitant]
     Route: 065
  9. ASPIRIN [Concomitant]
     Route: 065
  10. ULTRAM [Concomitant]
     Route: 065
  11. SOMA [Concomitant]
     Route: 065

REACTIONS (24)
  - ANAL FISSURE [None]
  - ANXIETY [None]
  - ARTERIOSCLEROSIS [None]
  - ATRIAL SEPTAL DEFECT [None]
  - BUNION OPERATION [None]
  - CARDIAC ANEURYSM [None]
  - CATARACT [None]
  - CHEST PAIN [None]
  - CORONARY ARTERY DISEASE [None]
  - CORONARY ARTERY OCCLUSION [None]
  - DEPRESSION [None]
  - DYSLIPIDAEMIA [None]
  - GASTROOESOPHAGEAL REFLUX DISEASE [None]
  - HEART INJURY [None]
  - HYPOACUSIS [None]
  - INSOMNIA [None]
  - LIBIDO DECREASED [None]
  - MALIGNANT MELANOMA [None]
  - MUSCLE TWITCHING [None]
  - MYOCARDIAL INFARCTION [None]
  - OESOPHAGEAL DISORDER [None]
  - SCROTAL HAEMATOCOELE [None]
  - SLEEP DISORDER [None]
  - TINNITUS [None]
